FAERS Safety Report 4432105-3 (Version None)
Quarter: 2004Q3

REPORT INFORMATION
  Report Type: 
  Country: None (occurrence: None)
  Receive Date: 20040819
  Receipt Date: 20040805
  Transmission Date: 20050211
  Serious: No
  Sender: FDA-Public Use
  Company Number: SGB1-2004-00260

PATIENT
  Age: 14 Year
  Sex: Female

DRUGS (3)
  1. MIDODRINE HCL [Suspect]
     Indication: ACCOMMODATION DISORDER
     Dosage: SEE IMAGE
     Route: 048
     Dates: end: 20040624
  2. MIDODRINE HCL [Suspect]
     Indication: ACCOMMODATION DISORDER
     Dosage: SEE IMAGE
     Route: 048
     Dates: start: 20040625, end: 20040625
  3. MIDODRINE HCL [Suspect]
     Indication: ACCOMMODATION DISORDER
     Dosage: SEE IMAGE
     Route: 048
     Dates: start: 20040626, end: 20040626

REACTIONS (5)
  - BLOOD PRESSURE INCREASED [None]
  - BRADYCARDIA [None]
  - CHEST PAIN [None]
  - HEADACHE [None]
  - INTENTIONAL OVERDOSE [None]
